FAERS Safety Report 18072699 (Version 1)
Quarter: 2020Q3

REPORT INFORMATION
  Report Type: Spontaneous
  Country: US (occurrence: US)
  Receive Date: 20200727
  Receipt Date: 20200727
  Transmission Date: 20201103
  Serious: No
  Sender: FDA-Public Use
  Company Number: US-SA-2020SA187104

PATIENT

DRUGS (15)
  1. DUPIXENT [Suspect]
     Active Substance: DUPILUMAB
     Indication: PRODUCT USED FOR UNKNOWN INDICATION
     Dosage: 600 MG, 1X
     Route: 058
  2. FLUOCINOLONE ACETONIDE. [Concomitant]
     Active Substance: FLUOCINOLONE ACETONIDE
  3. METFORMIN HCL [Concomitant]
     Active Substance: METFORMIN HYDROCHLORIDE
  4. MELOXICAM. [Concomitant]
     Active Substance: MELOXICAM
  5. SIMVASTATIN. [Concomitant]
     Active Substance: SIMVASTATIN
  6. TRAMADOL HCL [Concomitant]
     Active Substance: TRAMADOL HYDROCHLORIDE
  7. MONTELUKAST SODIUM. [Concomitant]
     Active Substance: MONTELUKAST SODIUM
  8. BETAMETHASONE DIPROPIONATE. [Concomitant]
     Active Substance: BETAMETHASONE DIPROPIONATE
  9. CLINDAMYCIN HCL [Concomitant]
     Active Substance: CLINDAMYCIN HYDROCHLORIDE
  10. NIFEDIPINE. [Concomitant]
     Active Substance: NIFEDIPINE
  11. CARVEDILOL. [Concomitant]
     Active Substance: CARVEDILOL
  12. HYDROCODONE/ACETAMINOPHEN [Concomitant]
     Active Substance: ACETAMINOPHEN\HYDROCODONE
  13. LOSARTAN POTASSIUM. [Concomitant]
     Active Substance: LOSARTAN POTASSIUM
  14. ELIQUIS [Concomitant]
     Active Substance: APIXABAN
  15. CLOPIDOGREL BISULFATE. [Concomitant]
     Active Substance: CLOPIDOGREL BISULFATE

REACTIONS (1)
  - Pain in extremity [Not Recovered/Not Resolved]
